FAERS Safety Report 20828200 (Version 2)
Quarter: 2022Q2

REPORT INFORMATION
  Report Type: Spontaneous
  Country: FR (occurrence: FR)
  Receive Date: 20220513
  Receipt Date: 20220518
  Transmission Date: 20220720
  Serious: Yes (Life-Threatening)
  Sender: FDA-Public Use
  Company Number: None

PATIENT
  Age: 49 Year
  Sex: Female
  Weight: 70 kg

DRUGS (5)
  1. ALPRAZOLAM [Suspect]
     Active Substance: ALPRAZOLAM
     Indication: Intentional overdose
     Dosage: 30 DOSAGE FORM (0.25 MG)
     Route: 048
     Dates: start: 20220329, end: 20220329
  2. SKENAN [Suspect]
     Active Substance: MORPHINE SULFATE
     Indication: Intentional overdose
     Dosage: 84 DOSAGE FORM
     Route: 048
     Dates: start: 20220329, end: 20220329
  3. TRIMEBUTINE [Concomitant]
     Active Substance: TRIMEBUTINE
     Indication: Intentional overdose
     Dosage: 10 DOSAGE FORM (200 MG)
     Route: 048
     Dates: start: 20220329, end: 20220329
  4. OMEPRAZOLE [Concomitant]
     Active Substance: OMEPRAZOLE
     Indication: Intentional overdose
     Dosage: 14 DOSAGE FORM (20 MG)
     Route: 048
     Dates: start: 20220329, end: 20220329
  5. ACETAMINOPHEN [Concomitant]
     Active Substance: ACETAMINOPHEN
     Indication: Intentional overdose
     Dosage: 8 DOSAGE FORM (1 G)
     Route: 048
     Dates: start: 20220329, end: 20220329

REACTIONS (2)
  - Poisoning deliberate [Recovered/Resolved]
  - Coma [Recovered/Resolved]

NARRATIVE: CASE EVENT DATE: 20220329
